FAERS Safety Report 9129559 (Version 2)
Quarter: 2013Q1

REPORT INFORMATION
  Report Type: Spontaneous
  Country: US (occurrence: US)
  Receive Date: 20130125
  Receipt Date: 20130315
  Transmission Date: 20140127
  Serious: No
  Sender: FDA-Public Use
  Company Number: US-PFIZER INC-2013030232

PATIENT
  Sex: Female

DRUGS (1)
  1. SUMATRIPTAN SUCCINATE [Suspect]
     Indication: MIGRAINE
     Dosage: 50 MG, UNK
     Route: 048

REACTIONS (4)
  - Product packaging issue [Not Recovered/Not Resolved]
  - Product coating issue [Unknown]
  - Product taste abnormal [Not Recovered/Not Resolved]
  - Nausea [Recovered/Resolved]
